FAERS Safety Report 20305586 (Version 2)
Quarter: 2022Q1

REPORT INFORMATION
  Report Type: Report from Study
  Country: CN (occurrence: None)
  Receive Date: 20220106
  Receipt Date: 20220311
  Transmission Date: 20220423
  Serious: Yes (Hospitalization)
  Sender: FDA-Public Use
  Company Number: 2021A908601

PATIENT
  Age: 55 Year
  Sex: Female

DRUGS (29)
  1. DURVALUMAB [Suspect]
     Active Substance: DURVALUMAB
     Indication: Oesophageal squamous cell carcinoma
     Dosage: 1500.0 MG
     Route: 042
     Dates: start: 20211103, end: 20211103
  2. DURVALUMAB [Suspect]
     Active Substance: DURVALUMAB
     Indication: Oesophageal squamous cell carcinoma
     Dosage: 1500.0 MG
     Route: 042
     Dates: start: 20211201, end: 20211201
  3. DURVALUMAB [Suspect]
     Active Substance: DURVALUMAB
     Indication: Oesophageal squamous cell carcinoma
     Dosage: 1500.0 MG
     Route: 042
     Dates: start: 20220105, end: 20220105
  4. CISPLATIN [Suspect]
     Active Substance: CISPLATIN
     Indication: Oesophageal squamous cell carcinoma
     Dosage: 30.0 MG/M2
     Route: 065
     Dates: start: 20211103, end: 20211103
  5. CISPLATIN [Suspect]
     Active Substance: CISPLATIN
     Indication: Oesophageal squamous cell carcinoma
     Dosage: 40.0 MG/M2
     Route: 065
     Dates: start: 20211110, end: 20211110
  6. CISPLATIN [Suspect]
     Active Substance: CISPLATIN
     Indication: Oesophageal squamous cell carcinoma
     Dosage: 40.0 MG/M2
     Route: 065
     Dates: start: 20211117, end: 20211117
  7. CISPLATIN [Suspect]
     Active Substance: CISPLATIN
     Indication: Oesophageal squamous cell carcinoma
     Dosage: 40.0 MG/M2
     Route: 065
     Dates: start: 20211124, end: 20211124
  8. CISPLATIN [Suspect]
     Active Substance: CISPLATIN
     Indication: Oesophageal squamous cell carcinoma
     Dosage: 40.0 MG/M2
     Route: 065
     Dates: start: 20211201, end: 20211201
  9. CAPECITABINE [Suspect]
     Active Substance: CAPECITABINE
     Indication: Oesophageal squamous cell carcinoma
     Route: 065
     Dates: start: 20211103, end: 20211107
  10. CAPECITABINE [Suspect]
     Active Substance: CAPECITABINE
     Indication: Oesophageal squamous cell carcinoma
     Route: 065
     Dates: start: 20211110, end: 20211114
  11. CAPECITABINE [Suspect]
     Active Substance: CAPECITABINE
     Indication: Oesophageal squamous cell carcinoma
     Route: 065
     Dates: start: 20211117, end: 20211121
  12. CAPECITABINE [Suspect]
     Active Substance: CAPECITABINE
     Indication: Oesophageal squamous cell carcinoma
     Route: 065
     Dates: start: 20211124, end: 20211128
  13. CAPECITABINE [Suspect]
     Active Substance: CAPECITABINE
     Indication: Oesophageal squamous cell carcinoma
     Route: 065
     Dates: start: 20211201, end: 20211205
  14. RADIATION THERAPY [Suspect]
     Active Substance: RADIATION THERAPY
     Indication: Oesophageal squamous cell carcinoma
     Dosage: 1.80, 28.00, DEFINITIVE,
     Route: 065
     Dates: start: 20211104, end: 20211210
  15. ESTAZOLAM [Concomitant]
     Active Substance: ESTAZOLAM
     Indication: Insomnia
     Dates: start: 20211103, end: 20211210
  16. PANTOPRAZOLE SODIUM [Concomitant]
     Active Substance: PANTOPRAZOLE SODIUM
     Indication: Protein total
     Dates: start: 20211103, end: 20211103
  17. PANTOPRAZOLE SODIUM [Concomitant]
     Active Substance: PANTOPRAZOLE SODIUM
     Indication: Protein total
     Dates: start: 20211104, end: 20211104
  18. PANTOPRAZOLE SODIUM [Concomitant]
     Active Substance: PANTOPRAZOLE SODIUM
     Indication: Protein total
     Dates: start: 20211105, end: 20211108
  19. PANTOPRAZOLE SODIUM [Concomitant]
     Active Substance: PANTOPRAZOLE SODIUM
     Indication: Protein total
     Dates: start: 20211110, end: 20211110
  20. PANTOPRAZOLE SODIUM [Concomitant]
     Active Substance: PANTOPRAZOLE SODIUM
     Indication: Protein total
     Dates: start: 20211117, end: 20211117
  21. ONDANSETRON HYDROCHLORIDE INJECTION [Concomitant]
     Indication: Prophylaxis of nausea and vomiting
     Dates: start: 20211103, end: 20211103
  22. SODIUM CHLORIDE [Concomitant]
     Active Substance: SODIUM CHLORIDE
     Indication: Blood chloride decreased
     Dates: start: 20211103, end: 20211103
  23. INTACTED PROTEIN ENTERAL NUTRITION POWDER [Concomitant]
     Indication: Decreased appetite
     Dates: start: 20211027
  24. POTASSIUM CHLORIDE [Concomitant]
     Active Substance: POTASSIUM CHLORIDE
     Indication: Infusion
     Dates: start: 20211105, end: 20211108
  25. DUPHALAC (LACTULOSE ORAL SOLUTION) [Concomitant]
     Indication: Constipation
     Dates: start: 20211106
  26. PALONOSETRON HYDROCHLORIDE [Concomitant]
     Active Substance: PALONOSETRON HYDROCHLORIDE
     Indication: Vomiting
     Dates: start: 20211105, end: 20211105
  27. MOSAPRIDE CITRATE [Concomitant]
     Active Substance: MOSAPRIDE CITRATE
     Indication: Toxicity to various agents
     Dates: start: 20211105
  28. ONDANSETRON HYDROCHLORIDE [Concomitant]
     Active Substance: ONDANSETRON HYDROCHLORIDE
     Indication: Vomiting
     Dates: start: 20211120, end: 20211129
  29. (CLINOLEIC)LONG CHAIN FAT EMULSION INJECTION (OO) [Concomitant]
     Indication: Infusion
     Dosage: 250.0 ML DAILY
     Dates: start: 20211105, end: 20211108

REACTIONS (1)
  - Radiation oesophagitis [Not Recovered/Not Resolved]

NARRATIVE: CASE EVENT DATE: 20211120
